FAERS Safety Report 15126334 (Version 1)
Quarter: 2018Q3

REPORT INFORMATION
  Report Type: Spontaneous
  Country: DE (occurrence: DE)
  Receive Date: 20180710
  Receipt Date: 20180710
  Transmission Date: 20181010
  Serious: Yes (Other)
  Sender: FDA-Public Use
  Company Number: DE-GLAXOSMITHKLINE-DE2018GSK121180

PATIENT
  Sex: Female

DRUGS (1)
  1. VIANI [Suspect]
     Active Substance: FLUTICASONE PROPIONATE\SALMETEROL XINAFOATE
     Indication: SEASONAL ALLERGY
     Dosage: UNK

REACTIONS (3)
  - Product use in unapproved indication [Unknown]
  - Cardiac pacemaker insertion [Unknown]
  - Breast cancer [Unknown]
